FAERS Safety Report 8257052-0 (Version None)
Quarter: 2012Q2

REPORT INFORMATION
  Report Type: 
  Country: None (occurrence: None)
  Receive Date: 20120403
  Receipt Date: 20120326
  Transmission Date: 20120825
  Serious: Yes (Other)
  Sender: FDA-Public Use
  Company Number: JP-GLAXOSMITHKLINE-B0783721A

PATIENT
  Age: 78 Year
  Sex: Male

DRUGS (11)
  1. ZOLPIDEM [Suspect]
     Indication: INSOMNIA
     Dosage: 10MG PER DAY
     Route: 048
  2. URSO 250 [Concomitant]
     Route: 048
  3. PAXIL [Suspect]
     Indication: DEPRESSION
     Dosage: 20MG PER DAY
     Route: 048
     Dates: start: 20110401, end: 20110501
  4. FAMOTIDINE [Suspect]
     Indication: GASTRITIS
     Dosage: 20MG PER DAY
     Route: 048
  5. PRORENAL [Concomitant]
     Dosage: 15MCG PER DAY
     Route: 048
  6. ADVAIR DISKUS 100/50 [Concomitant]
     Route: 055
  7. PAXIL [Suspect]
     Dosage: 40MG PER DAY
     Route: 048
     Dates: start: 20110501, end: 20120201
  8. PAXIL [Suspect]
     Dosage: 20MG PER DAY
     Route: 048
     Dates: start: 20120220
  9. ARICEPT [Concomitant]
     Indication: DEMENTIA ALZHEIMER'S TYPE
     Dosage: 5MG PER DAY
     Route: 048
  10. DEPAS [Suspect]
     Indication: INSOMNIA
     Dosage: .5MG PER DAY
     Route: 048
  11. NORVASC [Concomitant]
     Route: 048

REACTIONS (8)
  - ABNORMAL BEHAVIOUR [None]
  - SEXUAL ABUSE [None]
  - AGITATION [None]
  - AGGRESSION [None]
  - VERBAL ABUSE [None]
  - INSOMNIA [None]
  - ANXIETY [None]
  - SOCIAL AVOIDANT BEHAVIOUR [None]
